FAERS Safety Report 5320356-5 (Version None)
Quarter: 2007Q2

REPORT INFORMATION
  Report Type: 
  Country: None (occurrence: None)
  Receive Date: 20070509
  Receipt Date: 20070427
  Transmission Date: 20071010
  Serious: Yes (Congenital Anomaly)
  Sender: FDA-Public Use
  Company Number: DE-ROCHE-495724

PATIENT
  Sex: Male
  Weight: 2.8 kg

DRUGS (6)
  1. INVIRASE [Suspect]
     Indication: SYSTEMIC ANTIVIRAL TREATMENT
     Route: 064
     Dates: start: 20040929, end: 20050218
  2. FUZEON [Suspect]
     Indication: SYSTEMIC ANTIVIRAL TREATMENT
     Route: 064
     Dates: start: 20050322, end: 20050331
  3. TENOFOVIR DISOPROXIL FUMARATE [Concomitant]
     Indication: SYSTEMIC ANTIVIRAL TREATMENT
     Route: 064
     Dates: start: 20040729
  4. RITONAVIR [Concomitant]
     Indication: SYSTEMIC ANTIVIRAL TREATMENT
     Route: 064
     Dates: start: 20040729, end: 20050216
  5. LAMIVUDINE [Concomitant]
     Indication: SYSTEMIC ANTIVIRAL TREATMENT
     Route: 064
     Dates: start: 20040729, end: 20050216
  6. ZDV + DDC VS ZDV + 3TC VS ZDV + 3TC [Concomitant]
     Indication: SYSTEMIC ANTIVIRAL TREATMENT
     Route: 064
     Dates: start: 20050216

REACTIONS (1)
  - DIAPHRAGMATIC HERNIA [None]
